FAERS Safety Report 8185502-7 (Version None)
Quarter: 2012Q1

REPORT INFORMATION
  Report Type: 
  Country: None (occurrence: None)
  Receive Date: 20120305
  Receipt Date: 20120221
  Transmission Date: 20120608
  Serious: Yes (Hospitalization, Other)
  Sender: FDA-Public Use
  Company Number: FR-ROCHE-1041295

PATIENT
  Sex: Female

DRUGS (6)
  1. SINGULAIR [Concomitant]
  2. PREDNISOLONE [Concomitant]
  3. XOLAIR [Suspect]
     Indication: ASTHMA
     Route: 058
     Dates: start: 20111228
  4. VENTOLIN [Concomitant]
  5. XOLAIR [Suspect]
     Route: 065
     Dates: start: 20111228
  6. FLUTICASONE PROPIONATE/SALMETEROL [Concomitant]

REACTIONS (8)
  - MALAISE [None]
  - VOMITING [None]
  - SKIN PLAQUE [None]
  - BODY TEMPERATURE INCREASED [None]
  - NAUSEA [None]
  - DIZZINESS [None]
  - RASH [None]
  - BLOOD PRESSURE DECREASED [None]
